FAERS Safety Report 6461637-1 (Version None)
Quarter: 2009Q4

REPORT INFORMATION
  Report Type: 
  Country: None (occurrence: None)
  Receive Date: 20091123
  Receipt Date: 20091109
  Transmission Date: 20100525
  Serious: Yes (Death, Hospitalization)
  Sender: FDA-Public Use
  Company Number: 2009AC000067

PATIENT
  Age: 38 Year
  Sex: Female

DRUGS (29)
  1. DIGOXIN [Suspect]
     Dosage: 125 MCG;QD;PO
     Route: 048
     Dates: start: 20000101
  2. LASIX [Concomitant]
  3. TOPROL-XL [Concomitant]
  4. LISINOPRIL [Concomitant]
  5. ZOLOFT [Concomitant]
  6. AMIODARONE HCL [Concomitant]
  7. ASPIRIN [Concomitant]
  8. COREG [Concomitant]
  9. SULFASALAZINE [Concomitant]
  10. LEVOTHYROXINE SODIUM [Concomitant]
  11. SPIRIVA [Concomitant]
  12. NASONEX [Concomitant]
  13. ALVERT [Concomitant]
  14. COQ10 [Concomitant]
  15. CALCIUM [Concomitant]
  16. MAGNESIUM [Concomitant]
  17. COUMADIN [Concomitant]
  18. ALDACTONE [Concomitant]
  19. LEXAPRO [Concomitant]
  20. *FUROSEMIDE [Concomitant]
  21. TOPROL-XL [Concomitant]
  22. CARVEDILOL [Concomitant]
  23. SYNTHROID [Concomitant]
  24. ZINC [Concomitant]
  25. POTASSIUM PHOSPHATES [Concomitant]
  26. SULFASALAZINE [Concomitant]
  27. COENZYME Q10 [Concomitant]
  28. ASCORBIC ACID [Concomitant]
  29. VITAMIN B COMPLEX CAP [Concomitant]

REACTIONS (30)
  - CARDIAC FAILURE CONGESTIVE [None]
  - CARDIOMEGALY [None]
  - CHEST X-RAY ABNORMAL [None]
  - COLITIS [None]
  - CONGESTIVE CARDIOMYOPATHY [None]
  - DEHYDRATION [None]
  - DEPRESSION [None]
  - ECONOMIC PROBLEM [None]
  - EMPHYSEMA [None]
  - FATIGUE [None]
  - GAIT DISTURBANCE [None]
  - HEPATIC CONGESTION [None]
  - HEPATIC STEATOSIS [None]
  - HYPOTENSION [None]
  - IMPAIRED WORK ABILITY [None]
  - INJURY [None]
  - INTRACARDIAC THROMBUS [None]
  - LOSS OF CONSCIOUSNESS [None]
  - MACROANGIOPATHY [None]
  - MYOCARDIAL FIBROSIS [None]
  - PERICARDIAL EFFUSION [None]
  - PROCEDURAL DIZZINESS [None]
  - PROTHROMBIN TIME PROLONGED [None]
  - PULMONARY CONGESTION [None]
  - PULMONARY OEDEMA [None]
  - RENAL FAILURE [None]
  - RESPIRATORY ARREST [None]
  - SHOCK [None]
  - VENTRICULAR FIBRILLATION [None]
  - VENTRICULAR TACHYCARDIA [None]
